FAERS Safety Report 6591499-3 (Version None)
Quarter: 2010Q1

REPORT INFORMATION
  Report Type: 
  Country: None (occurrence: None)
  Receive Date: 20100219
  Receipt Date: 20100210
  Transmission Date: 20100710
  Serious: Yes (Hospitalization, Other)
  Sender: FDA-Public Use
  Company Number: US-ABBOTT-06P-163-0345134-00

PATIENT
  Sex: Male
  Weight: 83.99 kg

DRUGS (12)
  1. SYNTHROID [Suspect]
     Indication: THYROIDECTOMY
     Route: 048
     Dates: start: 19750101
  2. SYNTHROID [Interacting]
     Route: 048
     Dates: end: 20050101
  3. SYNTHROID [Interacting]
     Route: 048
     Dates: start: 20050101, end: 20090101
  4. SYNTHROID [Interacting]
     Route: 048
     Dates: start: 20090201, end: 20090520
  5. SYNTHROID [Interacting]
     Route: 048
     Dates: start: 20090601, end: 20090901
  6. SYNTHROID [Interacting]
     Route: 048
     Dates: start: 20091007, end: 20091101
  7. SYNTHROID [Interacting]
     Route: 048
     Dates: start: 20091101, end: 20091223
  8. SYNTHROID [Interacting]
     Route: 048
     Dates: start: 20091224, end: 20091225
  9. SYNTHROID [Interacting]
     Route: 048
     Dates: start: 20100115, end: 20100127
  10. PRILOSEC [Concomitant]
     Indication: OESOPHAGEAL DISORDER
     Route: 048
  11. HEART MEDICATION [Concomitant]
     Indication: CARDIAC DISORDER
     Dates: end: 20060101
  12. TOPROL-XL [Concomitant]
     Indication: CARDIAC DISORDER
     Route: 048

REACTIONS (20)
  - ABDOMINAL PAIN [None]
  - AGITATION [None]
  - ARRHYTHMIA [None]
  - CHOLECYSTITIS INFECTIVE [None]
  - COLD SWEAT [None]
  - DEPRESSION [None]
  - DIZZINESS [None]
  - DYSPEPSIA [None]
  - EROSIVE OESOPHAGITIS [None]
  - FAECES DISCOLOURED [None]
  - FREQUENT BOWEL MOVEMENTS [None]
  - HEART RATE INCREASED [None]
  - HEART RATE IRREGULAR [None]
  - HYPERTHYROIDISM [None]
  - INCORRECT DRUG ADMINISTRATION DURATION [None]
  - INSOMNIA [None]
  - IRRITABILITY [None]
  - LETHARGY [None]
  - PSYCHOMOTOR HYPERACTIVITY [None]
  - TACHYCARDIA [None]
